APPROVED DRUG PRODUCT: MEKTOVI
Active Ingredient: BINIMETINIB
Strength: 15MG
Dosage Form/Route: TABLET;ORAL
Application: N210498 | Product #001
Applicant: ARRAY BIOPHARMA INC
Approved: Jun 27, 2018 | RLD: Yes | RS: Yes | Type: RX

PATENTS:
Patent 9980944 | Expires: Oct 18, 2033
Patent 10005761 | Expires: Aug 27, 2030
Patent 9314464 | Expires: Jul 4, 2031
Patent 9850229 | Expires: Aug 27, 2030
Patent 9598376 | Expires: Oct 18, 2033
Patent 9314464 | Expires: Jul 4, 2031
Patent 10005761 | Expires: Aug 27, 2030
Patent 7777050 | Expires: Mar 13, 2026
Patent 9562016 | Expires: Oct 18, 2033

EXCLUSIVITY:
Code: I-928 | Date: Oct 11, 2026